FAERS Safety Report 16056683 (Version 4)
Quarter: 2019Q2

REPORT INFORMATION
  Report Type: Report from Study
  Country: CA (occurrence: CA)
  Receive Date: 20190311
  Receipt Date: 20190412
  Transmission Date: 20190711
  Serious: Yes (Other)
  Sender: FDA-Public Use
  Company Number: PHHY2018CA123301

PATIENT
  Age: 43 Year
  Sex: Female

DRUGS (5)
  1. ERELZI [Suspect]
     Active Substance: ETANERCEPT-SZZS
     Indication: JUVENILE IDIOPATHIC ARTHRITIS
     Dosage: 50 MG, QW
     Route: 058
     Dates: start: 20180913
  2. CELEBREX [Suspect]
     Active Substance: CELECOXIB
     Indication: PRODUCT USED FOR UNKNOWN INDICATION
     Route: 065
  3. ERELZI [Suspect]
     Active Substance: ETANERCEPT-SZZS
     Dosage: 50 MG, QW
     Route: 058
     Dates: start: 20190222
  4. ERELZI [Suspect]
     Active Substance: ETANERCEPT-SZZS
     Dosage: 50 MG, QW
     Route: 058
     Dates: start: 201810
  5. ERELZI [Suspect]
     Active Substance: ETANERCEPT-SZZS
     Dosage: 50 MG, QW
     Route: 058
     Dates: start: 20190325

REACTIONS (17)
  - Abdominal discomfort [Not Recovered/Not Resolved]
  - Nausea [Unknown]
  - Weight decreased [Unknown]
  - Decreased appetite [Unknown]
  - Headache [Unknown]
  - Panic reaction [Unknown]
  - Drug ineffective [Unknown]
  - Injection site pain [Unknown]
  - Feeding disorder [Unknown]
  - Dyspepsia [Unknown]
  - Gastrooesophageal reflux disease [Unknown]
  - Abdominal distension [Unknown]
  - Vaginal haemorrhage [Not Recovered/Not Resolved]
  - Peripheral swelling [Unknown]
  - Anxiety disorder [Unknown]
  - Seizure [Unknown]
  - Juvenile idiopathic arthritis [Unknown]

NARRATIVE: CASE EVENT DATE: 201812
